FAERS Safety Report 8189216-9 (Version None)
Quarter: 2012Q1

REPORT INFORMATION
  Report Type: 
  Country: None (occurrence: None)
  Receive Date: 20120306
  Receipt Date: 20120306
  Transmission Date: 20120608
  Serious: Yes (Hospitalization)
  Sender: FDA-Public Use
  Company Number: None

PATIENT
  Sex: Female
  Weight: 85 kg

DRUGS (1)
  1. PRADAXA [Suspect]
     Indication: ATRIAL FIBRILLATION
     Dosage: 150MG BID ORAL
     Route: 048
     Dates: start: 20111201

REACTIONS (5)
  - OEDEMA PERIPHERAL [None]
  - DYSPEPSIA [None]
  - PAIN IN EXTREMITY [None]
  - NO THERAPEUTIC RESPONSE [None]
  - GASTROINTESTINAL HAEMORRHAGE [None]
